FAERS Safety Report 9816692 (Version 4)
Quarter: 2014Q2

REPORT INFORMATION
  Report Type: Spontaneous
  Country: US (occurrence: US)
  Receive Date: 20140114
  Receipt Date: 20140422
  Transmission Date: 20141212
  Serious: Yes (Hospitalization, Other)
  Sender: FDA-Public Use
  Company Number: US-GILEAD-2014-0092001

PATIENT
  Sex: Female

DRUGS (3)
  1. LETAIRIS [Suspect]
     Indication: PULMONARY HYPERTENSION
     Dosage: 10 MG, QD
     Route: 065
     Dates: start: 20130708
  2. LETAIRIS [Suspect]
     Indication: PORTOPULMONARY HYPERTENSION
  3. REMODULIN [Concomitant]

REACTIONS (4)
  - Pulmonary hypertension [Unknown]
  - Pneumonia [Recovered/Resolved]
  - Oral fungal infection [Recovered/Resolved]
  - Right ventricular dysfunction [Unknown]
